FAERS Safety Report 8485992-6 (Version None)
Quarter: 2012Q3

REPORT INFORMATION
  Report Type: 
  Country: None (occurrence: None)
  Receive Date: 20120703
  Receipt Date: 20120702
  Transmission Date: 20120928
  Serious: Yes (Other)
  Sender: FDA-Public Use
  Company Number: FR-TEVA-342649ISR

PATIENT
  Age: 64 Year
  Sex: Female

DRUGS (6)
  1. ATORVASTATIN [Suspect]
     Route: 065
  2. ATENOLOL [Concomitant]
     Route: 065
  3. FUROSEMIDE [Concomitant]
     Route: 065
  4. MESALAMINE [Concomitant]
     Route: 065
  5. MYCOPHENOLATE MOFETIL [Concomitant]
     Indication: IMMUNOSUPPRESSION
     Route: 065
  6. SIROLIMUS [Interacting]
     Indication: IMMUNOSUPPRESSION
     Dosage: DOSAGE ADJUSTED AT 1MG STEPS TO ACHIEVE THERAPEUTIC DRUG LEVELS (6-10 MICROG/L)
     Route: 065
     Dates: start: 20070101, end: 20070801

REACTIONS (2)
  - DRUG INTERACTION [None]
  - PNEUMONITIS [None]
